FAERS Safety Report 12865087 (Version 1)
Quarter: 2016Q4

REPORT INFORMATION
  Report Type: Spontaneous
  Country: IN (occurrence: IN)
  Receive Date: 20161020
  Receipt Date: 20161020
  Transmission Date: 20170207
  Serious: Yes (Death)
  Sender: FDA-Public Use
  Company Number: IN-ROCHE-1844508

PATIENT
  Age: 59 Year
  Sex: Male

DRUGS (1)
  1. HERCLON [Suspect]
     Active Substance: TRASTUZUMAB
     Indication: GASTRIC CANCER
     Route: 042
     Dates: start: 201505

REACTIONS (1)
  - Neoplasm malignant [Fatal]
